FAERS Safety Report 13178606 (Version 1)
Quarter: 2017Q1

REPORT INFORMATION
  Report Type: Spontaneous
  Country: US (occurrence: US)
  Receive Date: 20170202
  Receipt Date: 20170202
  Transmission Date: 20170509
  Serious: Yes (Hospitalization)
  Sender: FDA-Public Use
  Company Number: None

PATIENT
  Age: 84 Year
  Sex: Male
  Weight: 108.5 kg

DRUGS (1)
  1. APIXABAN [Suspect]
     Active Substance: APIXABAN
     Indication: ATRIAL FIBRILLATION
     Route: 048
     Dates: start: 20160928

REACTIONS (7)
  - Diarrhoea [None]
  - Haematochezia [None]
  - Gastrointestinal haemorrhage [None]
  - Gastric haemorrhage [None]
  - Syncope [None]
  - Dizziness [None]
  - Anaemia [None]

NARRATIVE: CASE EVENT DATE: 20161219
